FAERS Safety Report 25431956 (Version 1)
Quarter: 2025Q2

REPORT INFORMATION
  Report Type: Spontaneous
  Country: US (occurrence: US)
  Receive Date: 20250613
  Receipt Date: 20250613
  Transmission Date: 20250716
  Serious: No
  Sender: ABBVIE
  Company Number: US-ABBVIE-6319608

PATIENT
  Sex: Male

DRUGS (1)
  1. CYCLOSPORINE [Suspect]
     Active Substance: CYCLOSPORINE
     Indication: Dry eye
     Route: 047

REACTIONS (3)
  - Ocular hyperaemia [Unknown]
  - Eye disorder [Unknown]
  - Product storage error [Unknown]
